FAERS Safety Report 13060833 (Version 1)
Quarter: 2016Q4

REPORT INFORMATION
  Report Type: Report from Study
  Country: US (occurrence: US)
  Receive Date: 20161225
  Receipt Date: 20161225
  Transmission Date: 20170207
  Serious: No
  Sender: FDA-Public Use
  Company Number: US-AMGEN-USASL2016179871

PATIENT
  Age: 58 Year
  Sex: Female

DRUGS (1)
  1. ENBREL [Suspect]
     Active Substance: ETANERCEPT
     Indication: RHEUMATOID ARTHRITIS
     Dosage: 50 MG, QWK
     Route: 065

REACTIONS (6)
  - Diarrhoea [Unknown]
  - Injection site discomfort [Unknown]
  - Nausea [Unknown]
  - Injection site pain [Unknown]
  - Injection site swelling [Unknown]
  - Nasopharyngitis [Recovering/Resolving]
